FAERS Safety Report 16011012 (Version 1)
Quarter: 2019Q1

REPORT INFORMATION
  Report Type: Spontaneous
  Country: FR (occurrence: FR)
  Receive Date: 20190227
  Receipt Date: 20190227
  Transmission Date: 20190418
  Serious: Yes (Hospitalization)
  Sender: FDA-Public Use
  Company Number: FR-ACCORD-108632

PATIENT
  Age: 68 Year
  Sex: Male
  Weight: 82 kg

DRUGS (9)
  1. ONDANSETRON [Suspect]
     Active Substance: ONDANSETRON
     Indication: PROPHYLAXIS OF NAUSEA AND VOMITING
     Route: 042
     Dates: start: 20180406, end: 20180406
  2. EMEND [Suspect]
     Active Substance: APREPITANT
     Indication: PROPHYLAXIS OF NAUSEA AND VOMITING
     Dosage: 125 MG ON 06-APR-2018
     Route: 048
     Dates: start: 20180407, end: 20180408
  3. ZAMUDOL LP [Suspect]
     Active Substance: TRAMADOL HYDROCHLORIDE
     Indication: PAIN
     Dosage: STRENGTH: 50 MG
     Route: 048
  4. OXALIPLATINE HOSPIRA [Suspect]
     Active Substance: OXALIPLATIN
     Indication: COLON CANCER METASTATIC
     Route: 042
     Dates: start: 20180406, end: 20180406
  5. METHYLPREDNISOLONE MYLAN [Suspect]
     Active Substance: METHYLPREDNISOLONE
     Indication: PROPHYLAXIS OF NAUSEA AND VOMITING
     Route: 042
     Dates: start: 20180406, end: 20180406
  6. INNOHEP [Suspect]
     Active Substance: TINZAPARIN SODIUM
     Indication: PULMONARY EMBOLISM
     Route: 058
     Dates: start: 201712, end: 20180421
  7. FLUOROURACILE ACCORD [Suspect]
     Active Substance: FLUOROURACIL
     Indication: COLON CANCER METASTATIC
     Dosage: ALSO RECEIVED 420 MG ON 06-APR-2018
     Route: 042
     Dates: start: 20180406, end: 20180408
  8. CALCIUM LEVOFOLINATE ZENTIVA [Suspect]
     Active Substance: LEVOLEUCOVORIN CALCIUM
     Indication: CHEMOTHERAPY TOXICITY ATTENUATION
     Route: 042
     Dates: start: 20180406, end: 20180406
  9. AVASTIN [Suspect]
     Active Substance: BEVACIZUMAB
     Indication: COLON CANCER METASTATIC
     Dosage: 25 MG / ML
     Route: 042
     Dates: start: 20180406, end: 20180406

REACTIONS (5)
  - Rectal haemorrhage [Recovered/Resolved]
  - Venoocclusive liver disease [Recovered/Resolved]
  - Portal hypertension [Recovered/Resolved]
  - Haematemesis [Recovered/Resolved]
  - Varices oesophageal [Recovered/Resolved]

NARRATIVE: CASE EVENT DATE: 20180419
